FAERS Safety Report 7962220-9 (Version None)
Quarter: 2011Q4

REPORT INFORMATION
  Report Type: 
  Country: None (occurrence: None)
  Receive Date: 20111207
  Receipt Date: 20111130
  Transmission Date: 20120403
  Serious: Yes (Hospitalization, Other)
  Sender: FDA-Public Use
  Company Number: PHHY2011JP099026

PATIENT
  Age: 71 Year
  Sex: Male

DRUGS (2)
  1. TASIGNA [Suspect]
     Dosage: 300 MG, DAILY
     Route: 048
     Dates: start: 20111109
  2. TASIGNA [Suspect]
     Indication: CHRONIC MYELOID LEUKAEMIA
     Dosage: 600 MG, QD
     Route: 048
     Dates: start: 20111019, end: 20111027

REACTIONS (8)
  - WHITE BLOOD CELL COUNT DECREASED [None]
  - NAUSEA [None]
  - FATIGUE [None]
  - ALANINE AMINOTRANSFERASE INCREASED [None]
  - HAEMOGLOBIN DECREASED [None]
  - GASTRIC ULCER HAEMORRHAGE [None]
  - ASPARTATE AMINOTRANSFERASE INCREASED [None]
  - HYPOPHAGIA [None]
